FAERS Safety Report 7901611-9 (Version None)
Quarter: 2011Q4

REPORT INFORMATION
  Report Type: 
  Country: None (occurrence: None)
  Receive Date: 20111108
  Receipt Date: 20111031
  Transmission Date: 20120403
  Serious: Yes (Other)
  Sender: FDA-Public Use
  Company Number: AU-ROCHE-1009658

PATIENT
  Sex: Female

DRUGS (1)
  1. LUCENTIS [Suspect]
     Indication: AGE-RELATED MACULAR DEGENERATION
     Route: 050
     Dates: start: 20101101

REACTIONS (5)
  - COUGH [None]
  - LIMB DISCOMFORT [None]
  - AORTIC ANEURYSM [None]
  - NASOPHARYNGITIS [None]
  - PAIN [None]
